FAERS Safety Report 8999016 (Version 3)
Quarter: 2013Q4

REPORT INFORMATION
  Report Type: Report from Study
  Country: BD (occurrence: BD)
  Receive Date: 20130103
  Receipt Date: 20131206
  Transmission Date: 20140711
  Serious: Yes (Death)
  Sender: FDA-Public Use
  Company Number: PHHY2013BD000922

PATIENT
  Age: 55 Year
  Sex: Male

DRUGS (1)
  1. EXELON PATCH [Suspect]
     Indication: DEMENTIA
     Dosage: 5 CM DIALY (4.6MG/24HOURS)
     Route: 062
     Dates: start: 200907, end: 201002

REACTIONS (2)
  - Cerebrovascular accident [Fatal]
  - Pyrexia [Fatal]
